FAERS Safety Report 20225745 (Version 2)
Quarter: 2022Q1

REPORT INFORMATION
  Report Type: Spontaneous
  Country: CN (occurrence: CN)
  Receive Date: 20211224
  Receipt Date: 20220105
  Transmission Date: 20220423
  Serious: Yes (Other)
  Sender: FDA-Public Use
  Company Number: CN-NOVOPROD-877280

PATIENT
  Age: 74 Year
  Sex: Male

DRUGS (2)
  1. NOVOLIN R [Suspect]
     Active Substance: INSULIN HUMAN
     Dosage: 300 IU, QD
     Route: 065
  2. NOVOLIN R [Suspect]
     Active Substance: INSULIN HUMAN
     Indication: Type 2 diabetes mellitus
     Dosage: 24 IU, BID
     Route: 065

REACTIONS (2)
  - Suicide attempt [Recovering/Resolving]
  - Intentional overdose [Recovering/Resolving]
